FAERS Safety Report 7796796-1 (Version None)
Quarter: 2011Q4

REPORT INFORMATION
  Report Type: 
  Country: None (occurrence: None)
  Receive Date: 20111005
  Receipt Date: 20110926
  Transmission Date: 20120403
  Serious: Yes (Hospitalization)
  Sender: FDA-Public Use
  Company Number: AU-JNJFOC-20110711863

PATIENT
  Sex: Male

DRUGS (4)
  1. STELARA [Suspect]
     Route: 058
     Dates: start: 20101223, end: 20101223
  2. STELARA [Suspect]
     Indication: PRODUCT USED FOR UNKNOWN INDICATION
     Route: 058
     Dates: start: 20110414, end: 20110414
  3. STELARA [Suspect]
     Route: 058
     Dates: start: 20110707, end: 20110707
  4. STELARA [Suspect]
     Route: 058
     Dates: start: 20110121, end: 20110121

REACTIONS (5)
  - BLOOD GLUCOSE INCREASED [None]
  - DYSPNOEA [None]
  - BLISTER [None]
  - CARDIAC DISORDER [None]
  - FLUID RETENTION [None]
